FAERS Safety Report 4870571-X (Version None)
Quarter: 2006Q1

REPORT INFORMATION
  Report Type: 
  Country: None (occurrence: None)
  Receive Date: 20060103
  Receipt Date: 20051228
  Transmission Date: 20060701
  Serious: Yes (Hospitalization)
  Sender: FDA-Public Use
  Company Number: FR-AVENTIS-200521398GDDC

PATIENT
  Age: 39 Year
  Sex: Male

DRUGS (2)
  1. MINIRIN [Suspect]
     Indication: POLYURIA
     Route: 045
     Dates: start: 20050901, end: 20050912
  2. MINIRIN [Suspect]
     Indication: POLYDIPSIA
     Route: 045
     Dates: start: 20050901, end: 20050912

REACTIONS (1)
  - AMAUROSIS FUGAX [None]
